FAERS Safety Report 14901444 (Version 1)
Quarter: 2018Q2

REPORT INFORMATION
  Report Type: Spontaneous
  Country: US (occurrence: US)
  Receive Date: 20180516
  Receipt Date: 20180516
  Transmission Date: 20180711
  Serious: No
  Sender: FDA-Public Use
  Company Number: US-MYLANLABS-2018M1026693

PATIENT
  Sex: Female
  Weight: 72.56 kg

DRUGS (2)
  1. ESTRADIOL VAGINAL CREAM USP [Suspect]
     Active Substance: ESTRADIOL
     Indication: HYSTERECTOMY
  2. ESTRADIOL VAGINAL CREAM USP [Suspect]
     Active Substance: ESTRADIOL
     Indication: HYPERTONIC BLADDER
     Dosage: 2 G, ONCE EVERY NIGHT
     Route: 067

REACTIONS (4)
  - Product packaging quantity issue [Unknown]
  - Drug dose omission [Unknown]
  - Off label use [Unknown]
  - No adverse event [Unknown]
